FAERS Safety Report 10950042 (Version 1)
Quarter: 2015Q1

REPORT INFORMATION
  Report Type: Spontaneous
  Country: PL (occurrence: PL)
  Receive Date: 20150324
  Receipt Date: 20150324
  Transmission Date: 20150721
  Serious: Yes (Hospitalization)
  Sender: FDA-Public Use
  Company Number: PL-GLAXOSMITHKLINE-PL2015GSK037850

PATIENT
  Age: 49 Year
  Sex: Female

DRUGS (6)
  1. RYTMONORM [Suspect]
     Active Substance: PROPAFENONE
     Dosage: 150 MG, TID
     Dates: start: 201410, end: 201503
  2. CONCOR [Concomitant]
     Active Substance: BISOPROLOL FUMARATE
  3. ACENOCUMAROL [Concomitant]
     Active Substance: ACENOCOUMAROL
     Dosage: UNK
     Dates: start: 201410, end: 201503
  4. MICARDIS [Concomitant]
     Active Substance: TELMISARTAN
  5. ROSWERA [Concomitant]
  6. PRIMACOR [Concomitant]
     Active Substance: MILRINONE LACTATE

REACTIONS (3)
  - Heart rate decreased [Recovered/Resolved]
  - Memory impairment [Recovered/Resolved]
  - Malaise [Recovered/Resolved]

NARRATIVE: CASE EVENT DATE: 201410
